FAERS Safety Report 7812519-1 (Version None)
Quarter: 2011Q4

REPORT INFORMATION
  Report Type: 
  Country: None (occurrence: None)
  Receive Date: 20111013
  Receipt Date: 20111003
  Transmission Date: 20120403
  Serious: Yes (Hospitalization, Other)
  Sender: FDA-Public Use
  Company Number: US-BAYER-2010-002165

PATIENT
  Age: 28 Year
  Sex: Female
  Weight: 63.492 kg

DRUGS (11)
  1. OXYCODONE HCL [Concomitant]
     Indication: MIGRAINE
     Dosage: UNK
     Dates: start: 20010101, end: 20050101
  2. LEXAPRO [Concomitant]
  3. PHENERGAN HCL [Concomitant]
  4. ZESTRIL [Concomitant]
  5. PAXIL [Concomitant]
  6. LACTULOSE [Concomitant]
     Indication: CHANGE OF BOWEL HABIT
     Dosage: UNK
     Dates: start: 20000101, end: 20080101
  7. ZOMIG [Concomitant]
     Indication: MIGRAINE
     Dosage: UNK
     Dates: start: 20010101, end: 20050101
  8. YASMIN [Suspect]
     Indication: PREMENSTRUAL SYNDROME
     Dosage: UNK
     Dates: start: 20030101, end: 20040601
  9. NUBAIN [Concomitant]
  10. PAROXETINE HCL [Concomitant]
     Dosage: 20 MG, UNK
  11. HYDROCODONE BITARTRATE [Concomitant]

REACTIONS (10)
  - GASTROOESOPHAGEAL REFLUX DISEASE [None]
  - GALLBLADDER DISORDER [None]
  - GASTROENTERITIS [None]
  - CHOLECYSTITIS CHRONIC [None]
  - CHOLELITHIASIS [None]
  - EMOTIONAL DISTRESS [None]
  - INJURY [None]
  - ANXIETY [None]
  - PAIN [None]
  - APHAGIA [None]
